FAERS Safety Report 25022713 (Version 1)
Quarter: 2025Q1

REPORT INFORMATION
  Report Type: Spontaneous
  Country: US (occurrence: US)
  Receive Date: 20250228
  Receipt Date: 20250228
  Transmission Date: 20250409
  Serious: Yes (Hospitalization, Other)
  Sender: Steriscience PTE
  Company Number: US-STERISCIENCE B.V.-2025-ST-000322

PATIENT
  Age: 4 Decade
  Sex: Female

DRUGS (8)
  1. LABETALOL [Suspect]
     Active Substance: LABETALOL
     Indication: Essential hypertension
     Route: 065
  2. LABETALOL [Suspect]
     Active Substance: LABETALOL
     Route: 065
  3. EPLERENONE [Suspect]
     Active Substance: EPLERENONE
     Indication: Primary hyperaldosteronism
     Route: 065
  4. EPLERENONE [Suspect]
     Active Substance: EPLERENONE
     Route: 065
  5. POTASSIUM CHLORIDE [Suspect]
     Active Substance: POTASSIUM CHLORIDE
     Indication: Primary hyperaldosteronism
     Route: 048
  6. POTASSIUM CHLORIDE [Suspect]
     Active Substance: POTASSIUM CHLORIDE
     Route: 048
  7. POTASSIUM CHLORIDE [Suspect]
     Active Substance: POTASSIUM CHLORIDE
     Route: 048
  8. NIFEDIPINE [Suspect]
     Active Substance: NIFEDIPINE
     Indication: Essential hypertension
     Route: 065

REACTIONS (2)
  - Hyperaldosteronism [None]
  - Maternal exposure during pregnancy [Unknown]
